FAERS Safety Report 22358032 (Version 2)
Quarter: 2023Q4

REPORT INFORMATION
  Report Type: Spontaneous
  Country: PL (occurrence: None)
  Receive Date: 20230524
  Receipt Date: 20231007
  Transmission Date: 20240110
  Serious: Yes (Hospitalization, Other)
  Sender: FDA-Public Use
  Company Number: PL-ROCHE-3351171

PATIENT
  Age: 62 Year
  Sex: Female

DRUGS (4)
  1. ATEZOLIZUMAB [Suspect]
     Active Substance: ATEZOLIZUMAB
     Indication: Hepatocellular carcinoma
     Dosage: 33 COURSES (PFS 22 MONTHS UNTIL /MAY/2020), 74 CYLES
     Route: 041
     Dates: start: 20180627
  2. BEVACIZUMAB [Suspect]
     Active Substance: BEVACIZUMAB
     Indication: Hepatocellular carcinoma
     Dosage: 33 COURSES (PFS 22 MONTHS UNTIL /MAY/2020), 74 CYLES
     Route: 042
     Dates: start: 20180627
  3. CABOZANTINIB [Suspect]
     Active Substance: CABOZANTINIB
     Indication: Hepatocellular carcinoma
     Dosage: FIRST COURSE, 1X60MG
     Route: 048
     Dates: start: 20221128
  4. CABOZANTINIB [Suspect]
     Active Substance: CABOZANTINIB
     Dosage: SECOND COURSE, 1X40MG
     Route: 048

REACTIONS (6)
  - Hepatocellular carcinoma [Unknown]
  - Proteinuria [Unknown]
  - Alanine aminotransferase increased [Unknown]
  - Asthenia [Unknown]
  - Diarrhoea [Unknown]
  - Hypothyroidism [Unknown]

NARRATIVE: CASE EVENT DATE: 20220101
